FAERS Safety Report 4597751-5 (Version None)
Quarter: 2005Q1

REPORT INFORMATION
  Report Type: 
  Country: None (occurrence: None)
  Receive Date: 20050303
  Receipt Date: 20050221
  Transmission Date: 20050727
  Serious: Yes (Other)
  Sender: FDA-Public Use
  Company Number: US-MERCK-0502USA03031

PATIENT
  Age: 61 Year
  Sex: Female

DRUGS (1)
  1. FOSAMAX [Suspect]
     Indication: OSTEOPENIA
     Route: 048

REACTIONS (4)
  - MEDICAL DEVICE COMPLICATION [None]
  - OSTEONECROSIS [None]
  - PALATAL DYSPLASIA [None]
  - POST PROCEDURAL COMPLICATION [None]
